FAERS Safety Report 16967816 (Version 2)
Quarter: 2019Q4

REPORT INFORMATION
  Report Type: Spontaneous
  Country: US (occurrence: US)
  Receive Date: 20191028
  Receipt Date: 20191106
  Transmission Date: 20200122
  Serious: Yes (Other)
  Sender: FDA-Public Use
  Company Number: US-BAUSCH-BL-2019-059207

PATIENT
  Age: 51 Year
  Sex: Male

DRUGS (3)
  1. 5-FLUOROURACIL [Suspect]
     Active Substance: FLUOROURACIL
     Indication: RECTOSIGMOID CANCER STAGE II
     Dosage: ONE CYCLICAL
     Route: 065
  2. OXALIPLATIN. [Concomitant]
     Active Substance: OXALIPLATIN
     Indication: RECTOSIGMOID CANCER STAGE II
     Dosage: ONE CYCLICAL
  3. FOLINIC ACID [Concomitant]
     Active Substance: LEUCOVORIN
     Indication: RECTOSIGMOID CANCER STAGE II
     Dosage: ONE CYCLICAL

REACTIONS (2)
  - Acute myocardial infarction [Unknown]
  - Cardiomyopathy [Recovering/Resolving]
